FAERS Safety Report 26072533 (Version 1)
Quarter: 2025Q4

REPORT INFORMATION
  Report Type: Report from Study
  Country: US (occurrence: US)
  Receive Date: 20251120
  Receipt Date: 20251120
  Transmission Date: 20260117
  Serious: Yes (Other)
  Sender: ABBVIE
  Company Number: US-ABBVIE-6539607

PATIENT
  Age: 60 Year
  Sex: Male
  Weight: 75.749 kg

DRUGS (10)
  1. IMBRUVICA [Suspect]
     Active Substance: IBRUTINIB
     Indication: Chronic lymphocytic leukaemia
     Dosage: FORM STRENGTH: 420 MILLIGRAM
     Route: 048
     Dates: start: 2023, end: 2024
  2. ALLOPURINOL [Concomitant]
     Active Substance: ALLOPURINOL
     Indication: Gout
  3. KETOCONAZOLE [Concomitant]
     Active Substance: KETOCONAZOLE
     Indication: Malignant melanoma
  4. ALPHA LIPOIC ACID [Concomitant]
     Active Substance: .ALPHA.-LIPOIC ACID
     Indication: Product used for unknown indication
  5. BACLOFEN [Concomitant]
     Active Substance: BACLOFEN
     Indication: Depression
  6. BRUKINSA [Concomitant]
     Active Substance: ZANUBRUTINIB
     Indication: Chronic lymphocytic leukaemia
     Dosage: FORM STRENGTH: 160 MILLIGRAM
     Route: 065
     Dates: start: 20251025
  7. MUPIROCIN [Concomitant]
     Active Substance: MUPIROCIN
     Indication: Dry skin
  8. OMEPRAZOLE [Concomitant]
     Active Substance: OMEPRAZOLE
     Indication: Product used for unknown indication
  9. TRIAMCINOLONE [Concomitant]
     Active Substance: TRIAMCINOLONE
     Indication: Product used for unknown indication
  10. VITAMIN D3 [Concomitant]
     Active Substance: CHOLECALCIFEROL
     Indication: Vitamin supplementation

REACTIONS (14)
  - Lymphoma [Unknown]
  - Renal cyst [Unknown]
  - Hypermetabolism [Unknown]
  - White blood cell count decreased [Unknown]
  - Weight decreased [Not Recovered/Not Resolved]
  - Scar [Recovering/Resolving]
  - Beta 2 microglobulin increased [Unknown]
  - Nail injury [Recovered/Resolved]
  - Positron emission tomogram abnormal [Unknown]
  - Lymphadenopathy [Recovering/Resolving]
  - Inguinal hernia [Unknown]
  - Skin exfoliation [Recovered/Resolved]
  - Blood glucose increased [Unknown]
  - Skin fissures [Recovering/Resolving]

NARRATIVE: CASE EVENT DATE: 20230101
